FAERS Safety Report 21007787 (Version 7)
Quarter: 2022Q3

REPORT INFORMATION
  Report Type: Report from Study
  Country: KR (occurrence: None)
  Receive Date: 20220627
  Receipt Date: 20220831
  Transmission Date: 20221027
  Serious: Yes (Hospitalization, Other)
  Sender: FDA-Public Use
  Company Number: KR-ROCHE-3121268

PATIENT
  Age: 76 Year
  Sex: Male
  Weight: 48.1 kg

DRUGS (16)
  1. GLOFITAMAB [Suspect]
     Active Substance: GLOFITAMAB
     Indication: Diffuse large B-cell lymphoma
     Dosage: DATE OF MOST RECENT DOSE (30 MG) OF STUDY DRUG PRIOR TO SAE: 30/MAY/2022, 13-APR-2022, 01-JUL-2022
     Route: 042
     Dates: start: 20211102
  2. OBINUTUZUMAB [Suspect]
     Active Substance: OBINUTUZUMAB
     Indication: Diffuse large B-cell lymphoma
     Dosage: DATE OF MOST RECENT DOSE (900 MG) OF STUDY DRUG PRIOR TO SAE: 26/NOV/2021, 26-OCT-2021, 26-NOV-2021
     Route: 042
     Dates: start: 20211025
  3. GEMCITABINE [Suspect]
     Active Substance: GEMCITABINE
     Indication: Diffuse large B-cell lymphoma
     Dosage: DATE OF MOST RECENT DOSE OF STUDY DRUG PRIOR TO SAE: 23/MAR/2022
     Route: 042
     Dates: start: 20211026
  4. OXALIPLATIN [Suspect]
     Active Substance: OXALIPLATIN
     Indication: Diffuse large B-cell lymphoma
     Dosage: DATE OF MOST RECENT DOSE OF STUDY DRUG PRIOR TO SAE: 23/MAR/2022
     Route: 042
     Dates: start: 20211026
  5. METFORMIN HYDROCHLORIDE [Concomitant]
     Active Substance: METFORMIN HYDROCHLORIDE
     Indication: Diabetes mellitus
     Route: 048
     Dates: start: 20210809
  6. ZEMIGLO [Concomitant]
     Indication: Diabetes mellitus
     Route: 048
     Dates: start: 20210809
  7. FIASP [Concomitant]
     Active Substance: INSULIN ASPART
     Indication: Diabetes mellitus
     Dosage: 4 U
     Route: 058
     Dates: start: 20211014
  8. LYRICA [Concomitant]
     Active Substance: PREGABALIN
     Indication: Hypoaesthesia
     Route: 048
     Dates: start: 20211101, end: 20220701
  9. PYRIDOXINE [Concomitant]
     Active Substance: PYRIDOXINE
     Indication: Hypoaesthesia
     Route: 048
     Dates: start: 20211108, end: 20220701
  10. TOUJEO [Concomitant]
     Active Substance: INSULIN GLARGINE
     Indication: Diabetes mellitus
     Dosage: 18 U
     Route: 058
     Dates: start: 20210809
  11. DEXAMETHASONE [Concomitant]
     Active Substance: DEXAMETHASONE
     Route: 042
     Dates: start: 20220413, end: 20220413
  12. DEXAMETHASONE [Concomitant]
     Active Substance: DEXAMETHASONE
     Route: 042
     Dates: start: 20220506, end: 20220506
  13. DEXAMETHASONE [Concomitant]
     Active Substance: DEXAMETHASONE
     Route: 042
     Dates: start: 20220530, end: 20220530
  14. TACENOL 8HOURS ER [Concomitant]
     Route: 048
     Dates: start: 20220413, end: 20220413
  15. TACENOL 8HOURS ER [Concomitant]
     Route: 048
     Dates: start: 20220506, end: 20220506
  16. TACENOL 8HOURS ER [Concomitant]
     Route: 048
     Dates: start: 20220530, end: 20220530

REACTIONS (5)
  - Neutrophil count decreased [Recovered/Resolved]
  - COVID-19 pneumonia [Recovered/Resolved]
  - Pneumocystis jirovecii pneumonia [Recovered/Resolved]
  - Cytomegalovirus viraemia [Recovered/Resolved]
  - Diarrhoea [Recovered/Resolved]

NARRATIVE: CASE EVENT DATE: 20220504
